FAERS Safety Report 10102759 (Version 2)
Quarter: 2014Q2

REPORT INFORMATION
  Report Type: Other
  Country: US (occurrence: US)
  Receive Date: 20140424
  Receipt Date: 20140630
  Transmission Date: 20141212
  Serious: Yes (Hospitalization, Other)
  Sender: FDA-Public Use
  Company Number: US-GSKPPD-2014GSK000414

PATIENT
  Age: 60 Year
  Sex: Male
  Weight: 69.01 kg

DRUGS (1)
  1. AVANDIA [Suspect]
     Indication: DIABETES MELLITUS
     Route: 048
     Dates: start: 20040708, end: 20050402

REACTIONS (2)
  - Myocardial infarction [None]
  - Myocardial infarction [Recovered/Resolved]
